FAERS Safety Report 24825765 (Version 7)
Quarter: 2025Q2

REPORT INFORMATION
  Report Type: Report from Study
  Country: CA (occurrence: CA)
  Receive Date: 20250109
  Receipt Date: 20250613
  Transmission Date: 20250717
  Serious: Yes (Hospitalization, Other)
  Sender: JOHNSON AND JOHNSON
  Company Number: CA-JNJFOC-20250109188

PATIENT
  Age: 68 Year
  Sex: Female

DRUGS (3)
  1. SIMPONI [Suspect]
     Active Substance: GOLIMUMAB
     Indication: Rheumatoid arthritis
     Route: 058
  2. SIMPONI [Suspect]
     Active Substance: GOLIMUMAB
     Route: 058
  3. SIMPONI [Suspect]
     Active Substance: GOLIMUMAB
     Dosage: THERAPY START DATE REPORTED AS 30-APR-2025
     Route: 058

REACTIONS (1)
  - Pneumonia [Not Recovered/Not Resolved]

NARRATIVE: CASE EVENT DATE: 20241201
